FAERS Safety Report 4340859-X (Version None)
Quarter: 2004Q2

REPORT INFORMATION
  Report Type: 
  Country: None (occurrence: None)
  Receive Date: 20040413
  Receipt Date: 20040401
  Transmission Date: 20050107
  Serious: Yes (Hospitalization)
  Sender: FDA-Public Use
  Company Number: 2004022816

PATIENT
  Age: 53 Year
  Sex: Male

DRUGS (9)
  1. ZOLOFT [Suspect]
     Indication: AFFECTIVE DISORDER
     Dosage: 125 MG (DAILY),
     Dates: end: 20040324
  2. ZOLOFT [Suspect]
     Indication: DEPRESSION
     Dosage: 125 MG (DAILY),
     Dates: end: 20040324
  3. CELECOXIB (CELECOXIB) [Concomitant]
  4. VALPROATE SODIUM [Concomitant]
  5. METOPROLOL (METOPROLOL) [Concomitant]
  6. AMIODARONE HCL [Concomitant]
  7. ATORVASTATIN (ATORVASTATIN) [Concomitant]
  8. FAMOTIDINE (FAMOTIDIE) [Concomitant]
  9. TRAZODONE HCL [Concomitant]

REACTIONS (1)
  - HYPONATRAEMIA [None]
